FAERS Safety Report 7212673-9 (Version None)
Quarter: 2011Q1

REPORT INFORMATION
  Report Type: 
  Country: None (occurrence: None)
  Receive Date: 20110106
  Receipt Date: 20101223
  Transmission Date: 20110831
  Serious: Yes (Death, Other)
  Sender: FDA-Public Use
  Company Number: US-CELGENEUS-163-21880-10110551

PATIENT
  Sex: Male

DRUGS (13)
  1. BACLOFEN [Concomitant]
     Dosage: 1/2-1 (5-10MG)
     Route: 048
  2. ADVAIR DISKUS 100/50 [Concomitant]
     Dosage: 250-50MCG (1 PUFF)
     Route: 055
  3. ALBUTEROL [Concomitant]
     Indication: WHEEZING
     Dosage: 2 PUFF(S)
     Route: 055
  4. DOXYCYCLINE [Concomitant]
     Route: 048
  5. DEXAMETHASONE [Concomitant]
     Route: 048
  6. LORAZEPAM [Concomitant]
  7. CODEINE-GUAIFENESIN [Concomitant]
     Indication: COUGH
     Dosage: 10-100MG/5ML
     Route: 048
  8. PROCHLORPERAZINE [Concomitant]
     Route: 048
  9. FUROSEMIDE [Concomitant]
     Dosage: 1-2
     Route: 048
  10. LORAZEPAM [Concomitant]
     Indication: ANXIETY
     Dosage: 1-2 (0.5-1MG)
     Route: 048
  11. NYSTATIN [Concomitant]
     Route: 048
  12. VIAGRA [Concomitant]
     Route: 048
  13. REVLIMID [Suspect]
     Indication: AMYLOIDOSIS
     Route: 048
     Dates: start: 20100820, end: 20101028

REACTIONS (2)
  - CARDIAC FAILURE [None]
  - AMYLOIDOSIS [None]
